FAERS Safety Report 23521619 (Version 1)
Quarter: 2024Q1

REPORT INFORMATION
  Report Type: Spontaneous
  Country: US (occurrence: US)
  Receive Date: 20240214
  Receipt Date: 20240214
  Transmission Date: 20240410
  Serious: No
  Sender: FDA-Public Use
  Company Number: US-JNJFOC-20240234832

PATIENT
  Sex: Male

DRUGS (2)
  1. SPRAVATO [Suspect]
     Active Substance: ESKETAMINE
     Indication: Depression
     Dosage: TWICE A WEEK
  2. SPRAVATO [Suspect]
     Active Substance: ESKETAMINE
     Indication: Anxiety

REACTIONS (4)
  - Drug ineffective [Unknown]
  - Anxiety [Unknown]
  - Memory impairment [Unknown]
  - Off label use [Unknown]
